FAERS Safety Report 5243282-9 (Version None)
Quarter: 2007Q1

REPORT INFORMATION
  Report Type: 
  Country: None (occurrence: None)
  Receive Date: 20070215
  Receipt Date: 20070131
  Transmission Date: 20070707
  Serious: Yes (Hospitalization)
  Sender: FDA-Public Use
  Company Number: T200700127

PATIENT
  Age: 70 Year
  Sex: Male

DRUGS (5)
  1. OPTIRAY 350 [Suspect]
     Dosage: 160 ML, SINGLE, INTRAVENOUS
     Route: 042
     Dates: start: 20070122, end: 20070122
  2. MORPHINE SULFATE [Suspect]
     Dosage: 2 MG, SINGLE, INTRAVENOUS
     Route: 042
     Dates: start: 20070122, end: 20070122
  3. RELANIUM /00017001/(DIAZEPAM) [Suspect]
     Dosage: 5 MG, SINGLE, INTRAVENOUS
     Route: 042
     Dates: start: 20070122, end: 20070122
  4. HEPARIN [Suspect]
     Dosage: UNK, SINGLE, UNK
     Dates: start: 20070122, end: 20070122
  5. NITROGLYCERIN [Suspect]
     Dosage: 20 MG, SINGLE, UNK
     Dates: start: 20070122, end: 20070122

REACTIONS (1)
  - HYPERTENSION [None]
